FAERS Safety Report 7261106-5 (Version None)
Quarter: 2011Q1

REPORT INFORMATION
  Report Type: 
  Country: None (occurrence: None)
  Receive Date: 20110130
  Receipt Date: 20100910
  Transmission Date: 20110831
  Serious: No
  Sender: FDA-Public Use
  Company Number: US-ABBOTT-10P-163-0670373-00

PATIENT
  Age: 44 Year
  Sex: Female

DRUGS (10)
  1. ESTROGENIC SUBSTANCE [Concomitant]
     Indication: UTERINE DISORDER
  2. PLAQUENIL [Concomitant]
     Indication: CARDIAC DISORDER
     Route: 048
  3. SIMVASTATIN [Concomitant]
     Indication: BLOOD CHOLESTEROL INCREASED
  4. ASPIRIN [Concomitant]
     Indication: CARDIAC DISORDER
     Route: 048
  5. PEPCID [Concomitant]
     Indication: GASTRIC DISORDER
  6. HUMIRA [Suspect]
     Indication: RHEUMATOID ARTHRITIS
     Dates: start: 20080919, end: 20100801
  7. DICLOFENAC [Concomitant]
     Indication: RHEUMATOID ARTHRITIS
     Route: 048
  8. PLAVIX [Concomitant]
     Indication: ISCHAEMIC HEART DISEASE PROPHYLAXIS
  9. METOPROLOL [Concomitant]
     Indication: BLOOD PRESSURE
     Route: 048
  10. BENICAR [Concomitant]
     Indication: HYPERTENSION
     Route: 048

REACTIONS (1)
  - SINUSITIS [None]
